FAERS Safety Report 10187960 (Version 1)
Quarter: 2014Q2

REPORT INFORMATION
  Report Type: Spontaneous
  Country: US (occurrence: None)
  Receive Date: 20140521
  Receipt Date: 20140521
  Transmission Date: 20141212
  Serious: Yes (Death)
  Sender: FDA-Public Use
  Company Number: None

PATIENT
  Age: 81 Year
  Sex: Male

DRUGS (2)
  1. XTANDI [Suspect]
     Indication: NEOPLASM MALIGNANT
     Dosage: 40MG, 4 PO QD
     Route: 048
     Dates: start: 20131107, end: 20131231
  2. ZOLPIDEM 10MG [Concomitant]

REACTIONS (1)
  - Disease progression [None]
